FAERS Safety Report 16654867 (Version 1)
Quarter: 2019Q3

REPORT INFORMATION
  Report Type: Spontaneous
  Country: MX (occurrence: MX)
  Receive Date: 20190801
  Receipt Date: 20190801
  Transmission Date: 20191004
  Serious: Yes (Other)
  Sender: FDA-Public Use
  Company Number: MX-ALKEM LABORATORIES LIMITED-MX-ALKEM-2018-07568

PATIENT
  Age: 4 Year
  Sex: Male

DRUGS (4)
  1. ACICLOVIR [Suspect]
     Active Substance: ACYCLOVIR
     Indication: VARICELLA ZOSTER VIRUS INFECTION
     Dosage: 20 MG/KG, OF BODY WEIGHT EVERY 6 H
     Route: 065
  2. ACICLOVIR [Suspect]
     Active Substance: ACYCLOVIR
     Indication: DISEASE RECURRENCE
     Dosage: 200 MG, EVERY 8 HOURS
     Route: 042
  3. CEFUROXIME AXETIL. [Suspect]
     Active Substance: CEFUROXIME AXETIL
     Indication: VARICELLA ZOSTER VIRUS INFECTION
     Dosage: 7 MG/KG, QD
     Route: 065
  4. CEFUROXIME AXETIL. [Suspect]
     Active Substance: CEFUROXIME AXETIL
     Indication: DISEASE RECURRENCE
     Dosage: 500 MG, EVERY 12 HOURS
     Route: 042

REACTIONS (1)
  - Drug ineffective [Recovering/Resolving]
